FAERS Safety Report 7473904-3 (Version None)
Quarter: 2011Q2

REPORT INFORMATION
  Report Type: 
  Country: None (occurrence: None)
  Receive Date: 20110511
  Receipt Date: 20110401
  Transmission Date: 20111010
  Serious: Yes (Hospitalization)
  Sender: FDA-Public Use
  Company Number: US-BAYER-201032141NA

PATIENT
  Sex: Female
  Weight: 104 kg

DRUGS (1)
  1. YASMIN [Suspect]
     Indication: PRODUCT USED FOR UNKNOWN INDICATION
     Dosage: UNK
     Dates: start: 20060101, end: 20070101

REACTIONS (8)
  - GALLBLADDER DISORDER [None]
  - LIVER FUNCTION TEST ABNORMAL [None]
  - BILE DUCT STONE [None]
  - CHOLELITHIASIS [None]
  - ORGAN FAILURE [None]
  - CHOLECYSTITIS ACUTE [None]
  - BILE DUCT OBSTRUCTION [None]
  - CHOLESTASIS [None]
